FAERS Safety Report 4801189-2 (Version None)
Quarter: 2005Q4

REPORT INFORMATION
  Report Type: 
  Country: None (occurrence: None)
  Receive Date: 20051011
  Receipt Date: 20050928
  Transmission Date: 20060501
  Serious: Yes (Other)
  Sender: FDA-Public Use
  Company Number: 2005136412

PATIENT
  Age: 69 Year
  Sex: Male

DRUGS (2)
  1. VFEND [Suspect]
     Indication: ASPERGILLOSIS
  2. CIPROFLOXACINE (CIPROFLOXACIN) [Concomitant]

REACTIONS (3)
  - HALLUCINATION [None]
  - NIGHTMARE [None]
  - SLEEP TERROR [None]
